FAERS Safety Report 4597698-4 (Version None)
Quarter: 2005Q1

REPORT INFORMATION
  Report Type: 
  Country: None (occurrence: None)
  Receive Date: 20050303
  Receipt Date: 20050215
  Transmission Date: 20050727
  Serious: Yes (Other)
  Sender: FDA-Public Use
  Company Number: FR-ABBOTT-05P-056-0291600-00

PATIENT
  Sex: Male

DRUGS (3)
  1. ODRIK [Suspect]
     Indication: DRUG USE FOR UNKNOWN INDICATION
     Route: 048
  2. NIF-TEN ^IMPERIAL^ [Concomitant]
     Indication: DRUG USE FOR UNKNOWN INDICATION
  3. OMEPRAZOLE [Concomitant]
     Indication: DRUG USE FOR UNKNOWN INDICATION

REACTIONS (2)
  - PANCREATIC PSEUDOCYST [None]
  - PANCREATITIS [None]
